FAERS Safety Report 9400177 (Version 2)
Quarter: 2013Q3

REPORT INFORMATION
  Report Type: Spontaneous
  Country: IN (occurrence: IN)
  Receive Date: 20130715
  Receipt Date: 20130822
  Transmission Date: 20140515
  Serious: Yes (Other)
  Sender: FDA-Public Use
  Company Number: IN-PFIZER INC-2013203814

PATIENT
  Age: 55 Year
  Sex: Male

DRUGS (7)
  1. FLUOROURACIL [Suspect]
     Indication: COLON CANCER
     Dosage: 400 MG/M2, DAY 1 OVER 2-4 MINUTES
  2. FLUOROURACIL [Suspect]
     Dosage: 600 MG/M2, DAY 1 22 HOUR INFUSION
  3. FLUOROURACIL [Suspect]
     Dosage: 400 MG/M2, CYCLIC: DAY 2 OVER 2-4 MINUTES
  4. FLUOROURACIL [Suspect]
     Dosage: 600 MG/M2, CYCLIC: DAY 2 22 HOUR INFUSION
  5. OXALIPLATIN [Suspect]
     Indication: COLON CANCER
     Dosage: 85 MG/M2, DAY 1
  6. LEUCOVORIN [Concomitant]
     Indication: COLON CANCER
     Dosage: 200 MG/M2, DAY 1 OVER 120 MINUTES
     Route: 042
  7. LEUCOVORIN [Concomitant]
     Dosage: 200 MG/M2, CYCLIC: DAY 2 OVER 120 MINUTES
     Route: 042

REACTIONS (1)
  - Leukoencephalopathy [Recovered/Resolved]
